FAERS Safety Report 19606814 (Version 1)
Quarter: 2021Q3

REPORT INFORMATION
  Report Type: Report from Study
  Country: None (occurrence: AT)
  Receive Date: 20210725
  Receipt Date: 20210725
  Transmission Date: 20211014
  Serious: Yes (Other)
  Sender: FDA-Public Use
  Company Number: AT-ABBVIE-21K-009-4002958-00

PATIENT
  Sex: Female

DRUGS (3)
  1. CANDESARTAN. [Concomitant]
     Active Substance: CANDESARTAN
     Indication: PRODUCT USED FOR UNKNOWN INDICATION
  2. THYREX [Concomitant]
     Active Substance: LEVOTHYROXINE SODIUM
     Indication: PRODUCT USED FOR UNKNOWN INDICATION
  3. HUMIRA [Suspect]
     Active Substance: ADALIMUMAB
     Indication: RHEUMATOID ARTHRITIS
     Route: 058
     Dates: start: 20180213

REACTIONS (2)
  - Hypoacusis [Not Recovered/Not Resolved]
  - Deafness [Recovering/Resolving]

NARRATIVE: CASE EVENT DATE: 20210404
